FAERS Safety Report 24798999 (Version 9)
Quarter: 2025Q2

REPORT INFORMATION
  Report Type: Report from Study
  Country: US (occurrence: US)
  Receive Date: 20250102
  Receipt Date: 20250606
  Transmission Date: 20250717
  Serious: Yes (Other)
  Sender: SUNOVION
  Company Number: US-SMPA-2024SPA006780

PATIENT

DRUGS (4)
  1. ORGOVYX [Suspect]
     Active Substance: RELUGOLIX
     Indication: Prostate cancer
     Dosage: 120 MG, QD
     Route: 048
     Dates: start: 20241231
  2. PREDNISONE [Interacting]
     Active Substance: PREDNISONE
     Indication: Prostate cancer
     Dosage: 5 MG, QD
     Route: 065
     Dates: start: 20241231
  3. HERBALS [Interacting]
     Active Substance: HERBALS
     Route: 065
  4. ABIRATERONE ACETATE [Suspect]
     Active Substance: ABIRATERONE ACETATE
     Indication: Prostate cancer
     Dosage: 1000 MG, QD
     Route: 065
     Dates: start: 20241231

REACTIONS (17)
  - Wrist fracture [Unknown]
  - Hand fracture [Unknown]
  - Fall [Unknown]
  - Heart rate irregular [Unknown]
  - Hypersomnia [Unknown]
  - Fungal infection [Unknown]
  - Skin weeping [Unknown]
  - Pruritus genital [Unknown]
  - Procedural pain [Unknown]
  - Micturition urgency [Unknown]
  - Ear haemorrhage [Unknown]
  - Weight increased [Unknown]
  - Asthenia [Unknown]
  - Hot flush [Unknown]
  - Musculoskeletal stiffness [Unknown]
  - Fatigue [Unknown]
  - Incorrect dose administered [Unknown]
